FAERS Safety Report 11638729 (Version 3)
Quarter: 2017Q4

REPORT INFORMATION
  Report Type: Report from Study
  Country: BR (occurrence: BR)
  Receive Date: 20151016
  Receipt Date: 20171129
  Transmission Date: 20180320
  Serious: Yes (Other)
  Sender: FDA-Public Use
  Company Number: BR-BRISTOL-MYERS SQUIBB COMPANY-19485416

PATIENT
  Age: 39 Year
  Sex: Female

DRUGS (4)
  1. NORVIR [Concomitant]
     Active Substance: RITONAVIR
     Indication: ANTIRETROVIRAL THERAPY
     Dosage: 100 MG, QD
     Route: 048
     Dates: start: 20110624
  2. LAMIVUDINE AND ZIDOVUDINE [Concomitant]
     Active Substance: LAMIVUDINE\ZIDOVUDINE
     Indication: ANTIRETROVIRAL THERAPY
     Dosage: 2 DF, QD
     Route: 048
     Dates: start: 20110624
  3. ATAZANAVIR SULFATE. [Suspect]
     Active Substance: ATAZANAVIR SULFATE
     Indication: ANTIRETROVIRAL THERAPY
     Dosage: 300 MG, QD
     Route: 048
     Dates: start: 20110624, end: 20111027
  4. ATAZANAVIR SULFATE. [Suspect]
     Active Substance: ATAZANAVIR SULFATE
     Indication: PRODUCT USED FOR UNKNOWN INDICATION
     Dosage: 400 MG, QD
     Route: 048
     Dates: start: 20111028

REACTIONS (3)
  - Gestational hypertension [Recovered/Resolved]
  - Live birth [Unknown]
  - Maternal exposure during pregnancy [Recovered/Resolved]

NARRATIVE: CASE EVENT DATE: 20111229
